FAERS Safety Report 12446245 (Version 2)
Quarter: 2016Q2

REPORT INFORMATION
  Report Type: Spontaneous
  Country: None (occurrence: JP)
  Receive Date: 20160608
  Receipt Date: 20160610
  Transmission Date: 20160815
  Serious: Yes (Other)
  Sender: FDA-Public Use
  Company Number: JP-SERB S.A.S.-1053478

PATIENT
  Age: 9 Decade
  Sex: Female

DRUGS (1)
  1. CYANOKIT [Suspect]
     Active Substance: HYDROXOCOBALAMIN
     Indication: RESPIRATORY FUME INHALATION DISORDER
     Route: 042
     Dates: start: 20160524

REACTIONS (2)
  - Renal impairment [Unknown]
  - Chromaturia [Unknown]

NARRATIVE: CASE EVENT DATE: 20160524
